FAERS Safety Report 9047332 (Version 1)
Quarter: 2013Q1

REPORT INFORMATION
  Report Type: Report from Study
  Country: US (occurrence: US)
  Receive Date: 20130131
  Receipt Date: 20130131
  Transmission Date: 20140127
  Serious: No
  Sender: FDA-Public Use
  Company Number: US-ABBOTT-12P-163-0978814-00

PATIENT
  Age: 60 Year
  Sex: Female

DRUGS (14)
  1. HUMIRA [Suspect]
     Indication: PSORIASIS
     Dates: start: 20120208
  2. ZANAFLEX [Concomitant]
     Indication: MUSCLE SPASMS
     Dosage: 4MG 2 IN THE MORNING, 1 IN AFTERNOON AND 1 AT NIGHT
  3. ULTRAM [Concomitant]
     Indication: BACK PAIN
     Dosage: 50MG 2 IN THE MORNING, 2 IN AFTERNOON AND 2 IN EVENING
  4. LYRICA [Concomitant]
     Indication: BACK PAIN
  5. BACLOFEN [Concomitant]
     Indication: BACK PAIN
  6. BACLOFEN [Concomitant]
     Indication: MUSCLE SPASMS
  7. ELAVIL [Concomitant]
     Indication: INSOMNIA
     Dosage: 10MG 2 TABLETS IN EVENING
  8. REMERON [Concomitant]
     Indication: INSOMNIA
     Dosage: 30MG 1 AT NIGHT
  9. REMERON [Concomitant]
     Indication: PAIN
  10. LIPITOR [Concomitant]
     Indication: BLOOD CHOLESTEROL
     Dosage: 40MG ONCE A DAY
  11. FOLIC ACID [Concomitant]
     Indication: BLOOD CHOLESTEROL
     Dosage: 1MG ONCE A DAY
  12. PERCOCET [Concomitant]
     Indication: PAIN
  13. TRIAMCINOLONE 1% TOPICAL [Concomitant]
     Indication: PSORIASIS
     Dosage: AT NIGHT
     Route: 061
  14. CALCIPOTRIENE [Concomitant]
     Indication: PRODUCT USED FOR UNKNOWN INDICATION
     Dosage: 0.005% DAY TIME
     Route: 061

REACTIONS (1)
  - Psoriasis [Not Recovered/Not Resolved]
